FAERS Safety Report 8270414-0 (Version None)
Quarter: 2012Q2

REPORT INFORMATION
  Report Type: 
  Country: None (occurrence: None)
  Receive Date: 20120410
  Receipt Date: 20120403
  Transmission Date: 20120825
  Serious: Yes (Other)
  Sender: FDA-Public Use
  Company Number: PHEH2012US007268

PATIENT

DRUGS (1)
  1. CLOZARIL [Suspect]

REACTIONS (3)
  - WHITE BLOOD CELL COUNT DECREASED [None]
  - NEUTROPHIL COUNT INCREASED [None]
  - NEUTROPHIL COUNT DECREASED [None]
